FAERS Safety Report 26145265 (Version 1)
Quarter: 2025Q4

REPORT INFORMATION
  Report Type: Spontaneous
  Country: IN (occurrence: IN)
  Receive Date: 20251211
  Receipt Date: 20251211
  Transmission Date: 20260118
  Serious: Yes (Hospitalization, Other)
  Sender: PFIZER
  Company Number: IN-PFIZER INC-PV202300107039

PATIENT
  Age: 52 Year
  Sex: Female
  Weight: 91.7 kg

DRUGS (9)
  1. LORLATINIB [Suspect]
     Active Substance: LORLATINIB
     Indication: Non-small cell lung cancer
     Dosage: 100 MG, 1X/DAY
     Route: 048
     Dates: start: 20230420
  2. LORLATINIB [Suspect]
     Active Substance: LORLATINIB
     Dosage: 50 MG, 1X/DAY
     Route: 048
  3. LORLATINIB [Suspect]
     Active Substance: LORLATINIB
     Dosage: 100 MG, 1X/DAY
     Route: 048
  4. LORLATINIB [Suspect]
     Active Substance: LORLATINIB
     Dosage: 75 MG, DAILY (AFTER BREAKSFAST)
  5. LORLATINIB [Suspect]
     Active Substance: LORLATINIB
     Dosage: 50 MG, 1X/DAY
     Route: 048
  6. LORLATINIB [Suspect]
     Active Substance: LORLATINIB
     Dosage: 75 MG, 1X/DAY (1-0-0 FOR NEXT 6 MONTHS AFTER BREAKFAST
     Route: 048
  7. D RISE [Concomitant]
     Dosage: 6000 IU, MONTHLY (FOR NEXT 6 MONTHS)
  8. LEVETIRACETAM [Concomitant]
     Active Substance: LEVETIRACETAM
     Indication: Metastases to central nervous system
     Dosage: 500 MG (1-0-L)
  9. ROSUVAS [ROSUVASTATIN CALCIUM] [Concomitant]
     Dosage: UNK, 1X/DAY

REACTIONS (31)
  - Lower respiratory tract infection [Recovering/Resolving]
  - Blood pressure increased [Unknown]
  - Non-small cell lung cancer [Unknown]
  - Malignant neoplasm progression [Unknown]
  - Fluid retention [Recovering/Resolving]
  - Peripheral swelling [Not Recovered/Not Resolved]
  - Blood cholesterol increased [Recovering/Resolving]
  - Rash [Recovering/Resolving]
  - Low density lipoprotein increased [Recovering/Resolving]
  - Physical examination abnormal [Unknown]
  - Positron emission tomogram abnormal [Unknown]
  - Asthenia [Unknown]
  - Burning sensation [Not Recovered/Not Resolved]
  - Weight abnormal [Unknown]
  - Red blood cell sedimentation rate increased [Unknown]
  - Mean cell haemoglobin decreased [Unknown]
  - Mean cell haemoglobin concentration decreased [Unknown]
  - Red cell distribution width increased [Unknown]
  - Neutrophil percentage decreased [Unknown]
  - Lymphocyte percentage increased [Unknown]
  - Lymphocyte count increased [Unknown]
  - Vitamin D decreased [Unknown]
  - Globulins increased [Unknown]
  - Nasopharyngitis [Not Recovered/Not Resolved]
  - Cough [Not Recovered/Not Resolved]
  - Nausea [Unknown]
  - Productive cough [Unknown]
  - Dizziness [Unknown]
  - Oxygen saturation decreased [Unknown]
  - Body mass index increased [Unknown]
  - Full blood count abnormal [Unknown]

NARRATIVE: CASE EVENT DATE: 20230401
